FAERS Safety Report 24738423 (Version 1)
Quarter: 2024Q4

REPORT INFORMATION
  Report Type: Spontaneous
  Country: US (occurrence: US)
  Receive Date: 20241216
  Receipt Date: 20241216
  Transmission Date: 20250115
  Serious: Yes (Other)
  Sender: MYLAN
  Company Number: US-MYLANLABS-2024M1112071

PATIENT
  Age: 57 Year
  Sex: Male

DRUGS (9)
  1. DAPSONE [Suspect]
     Active Substance: DAPSONE
     Indication: Antifungal prophylaxis
     Dosage: UNK
     Route: 065
  2. EVEROLIMUS [Suspect]
     Active Substance: EVEROLIMUS
     Indication: Clear cell renal cell carcinoma
     Dosage: 5 MILLIGRAM, QD
     Route: 048
  3. SUNITINIB [Suspect]
     Active Substance: SUNITINIB
     Indication: Clear cell renal cell carcinoma
     Dosage: UNK
     Route: 065
  4. BELZUTIFAN [Suspect]
     Active Substance: BELZUTIFAN
     Indication: Clear cell renal cell carcinoma
     Dosage: 80 MILLIGRAM, QD
     Route: 048
  5. BELZUTIFAN [Suspect]
     Active Substance: BELZUTIFAN
     Dosage: UNK, INITIALLY DISCONTINUED AND LATER RESTARTED
     Route: 048
  6. CABOZANTINIB [Suspect]
     Active Substance: CABOZANTINIB
     Indication: Clear cell renal cell carcinoma
     Dosage: UNK
     Route: 065
  7. TIVOZANIB [Suspect]
     Active Substance: TIVOZANIB
     Indication: Clear cell renal cell carcinoma
     Dosage: UNK
     Route: 065
  8. IPILIMUMAB [Concomitant]
     Active Substance: IPILIMUMAB
     Indication: Clear cell renal cell carcinoma
     Dosage: UNK
     Route: 065
  9. NIVOLUMAB [Concomitant]
     Active Substance: NIVOLUMAB
     Indication: Clear cell renal cell carcinoma
     Dosage: UNK
     Route: 065

REACTIONS (5)
  - Anaemia [Recovering/Resolving]
  - Pericardial effusion [Recovered/Resolved]
  - Disease progression [Unknown]
  - Drug ineffective [Unknown]
  - Off label use [Unknown]
